FAERS Safety Report 7803471-3 (Version None)
Quarter: 2011Q4

REPORT INFORMATION
  Report Type: 
  Country: None (occurrence: None)
  Receive Date: 20111007
  Receipt Date: 20111006
  Transmission Date: 20120403
  Serious: Yes (Other)
  Sender: FDA-Public Use
  Company Number: US-MERCK-1104USA03724

PATIENT
  Age: 66 Year
  Sex: Female

DRUGS (9)
  1. [THERAPY UNSPECIFIED] [Concomitant]
     Indication: RHEUMATOID ARTHRITIS
     Route: 065
  2. FOSAMAX [Suspect]
     Indication: OSTEOPOROSIS
     Route: 048
     Dates: start: 19980101, end: 20060901
  3. VITAMINS (UNSPECIFIED) [Concomitant]
     Route: 065
     Dates: start: 19900101
  4. POTASSIUM (UNSPECIFIED) [Concomitant]
     Route: 065
     Dates: start: 19900101
  5. IRON (UNSPECIFIED) [Concomitant]
     Route: 065
     Dates: start: 19900101
  6. RECLAST [Concomitant]
     Indication: OSTEOPOROSIS
     Route: 051
     Dates: start: 20080201
  7. CALCIUM (UNSPECIFIED) [Concomitant]
     Route: 065
     Dates: start: 19900101
  8. MAGNESIUM (UNSPECIFIED) [Concomitant]
     Route: 065
     Dates: start: 19900101
  9. FOSAMAX [Suspect]
     Indication: MUSCLE SPASMS
     Route: 048
     Dates: start: 19980101, end: 20060901

REACTIONS (2)
  - FEMUR FRACTURE [None]
  - HYPERTENSION [None]
